FAERS Safety Report 22526673 (Version 1)
Quarter: 2023Q2

REPORT INFORMATION
  Report Type: Spontaneous
  Country: EG (occurrence: EG)
  Receive Date: 20230606
  Receipt Date: 20230606
  Transmission Date: 20230722
  Serious: Yes (Other)
  Sender: FDA-Public Use
  Company Number: EG-AMGEN-EGYSP2022186818

PATIENT

DRUGS (2)
  1. ADALIMUMAB [Suspect]
     Active Substance: ADALIMUMAB
     Indication: Uveitis
     Dosage: 20 MILLIGRAM, Q2WK
     Route: 058
  2. ADALIMUMAB [Suspect]
     Active Substance: ADALIMUMAB
     Dosage: 40 MILLIGRAM, Q2WK
     Route: 058

REACTIONS (8)
  - Iris adhesions [Unknown]
  - Hypotony of eye [Unknown]
  - Papilloedema [Unknown]
  - Glaucoma [Unknown]
  - Cataract [Unknown]
  - Visual acuity reduced [Unknown]
  - Keratopathy [Unknown]
  - Drug ineffective [Unknown]
